FAERS Safety Report 7304694-2 (Version None)
Quarter: 2011Q1

REPORT INFORMATION
  Report Type: 
  Country: None (occurrence: None)
  Receive Date: 20110222
  Receipt Date: 20110209
  Transmission Date: 20110831
  Serious: Yes (Hospitalization, Other)
  Sender: FDA-Public Use
  Company Number: US-CELGENEUS-163-21880-10102595

PATIENT
  Sex: Male
  Weight: 65.83 kg

DRUGS (49)
  1. ZOLPIDEM TARTRATE [Concomitant]
     Route: 048
  2. ASCORBIC ACID [Concomitant]
     Route: 048
  3. CALCIUM [Concomitant]
     Route: 048
  4. SIMVASTATIN [Concomitant]
     Route: 048
  5. AREDIA [Concomitant]
     Route: 051
  6. PROZAC [Concomitant]
     Route: 065
  7. MACRODANTIN [Concomitant]
     Route: 048
  8. SYNTHROID [Concomitant]
     Route: 065
  9. TYLENOL [Concomitant]
     Route: 065
  10. REVLIMID [Suspect]
     Indication: MULTIPLE MYELOMA
     Route: 048
     Dates: start: 20100909, end: 20100930
  11. FLUOXETINE [Concomitant]
     Route: 048
  12. FUROSEMIDE [Concomitant]
     Route: 065
  13. HYDROCHLOROTHIAZIDE [Concomitant]
     Route: 048
  14. TAMSULOSIN [Concomitant]
     Indication: URINARY RETENTION
     Route: 048
     Dates: start: 20061011
  15. INDERAL [Concomitant]
     Route: 065
  16. ATIVAN [Concomitant]
     Route: 065
  17. SEROQUEL [Concomitant]
     Route: 065
  18. FLUIDS [Concomitant]
     Dosage: 100CC
     Route: 040
  19. MILK OF MAGNESIA TAB [Concomitant]
     Route: 048
  20. NITROFURANTOIN [Concomitant]
     Route: 048
  21. POTASSIUM CHLORIDE [Concomitant]
     Route: 048
  22. QUETIAPINE [Concomitant]
     Indication: SLEEP DISORDER
     Route: 048
     Dates: start: 20101014
  23. LUTEIN [Concomitant]
     Route: 048
  24. CELEXA [Concomitant]
     Route: 065
  25. AMLODIPINE [Concomitant]
     Route: 048
  26. MULTI-VITAMINS [Concomitant]
     Route: 048
  27. OMEPRAZOLE [Concomitant]
     Route: 048
  28. PRIMIDONE [Concomitant]
     Route: 048
  29. PROPRANOLOL [Concomitant]
     Route: 048
  30. LOVAZA [Concomitant]
     Route: 048
  31. K-DUR [Concomitant]
     Route: 065
  32. PROTONIX [Concomitant]
     Route: 065
  33. COLACE [Concomitant]
     Dosage: 100
     Route: 048
  34. FOLIC ACID [Concomitant]
     Route: 065
  35. HYDROCODONE [Concomitant]
     Indication: PAIN
     Route: 065
  36. HYDROCHLOROTHIAZIDE [Concomitant]
     Route: 048
  37. OMEPRAZOLE [Concomitant]
     Route: 048
  38. PAMIDRONATE DISODIUM [Concomitant]
     Route: 051
     Dates: start: 20101103
  39. LORTAB [Concomitant]
     Route: 048
  40. WHOLE BLOOD [Concomitant]
     Dosage: 2 UNITS
     Route: 051
  41. SEROQUEL [Concomitant]
     Route: 065
  42. FLUOXETINE [Concomitant]
     Indication: DEPRESSION
     Route: 048
     Dates: start: 20061001
  43. HYDROCODONE BITARTRATE + ACETAMINOPHEN [Concomitant]
     Indication: PAIN
     Route: 048
  44. OXYGEN [Concomitant]
     Route: 055
     Dates: start: 20100901
  45. ASA [Concomitant]
     Route: 048
  46. DOCUSATE [Concomitant]
     Route: 048
  47. LISINOPRIL [Concomitant]
     Route: 048
  48. LORAZEPAM [Concomitant]
     Route: 048
  49. METAMUCIL-2 [Concomitant]
     Dosage: 1 PACKET IN 8OZ OF WATER
     Route: 065

REACTIONS (13)
  - RIB FRACTURE [None]
  - CARDIAC FAILURE CONGESTIVE [None]
  - FALL [None]
  - CONSTIPATION [None]
  - CONFUSIONAL STATE [None]
  - SPINAL FRACTURE [None]
  - FATIGUE [None]
  - DRUG INTOLERANCE [None]
  - ASTHENIA [None]
  - BLOOD POTASSIUM DECREASED [None]
  - SUICIDAL IDEATION [None]
  - URINARY TRACT OBSTRUCTION [None]
  - PARAESTHESIA [None]
